FAERS Safety Report 9664278 (Version 1)
Quarter: 2013Q4

REPORT INFORMATION
  Report Type: Spontaneous
  Country: GB (occurrence: GB)
  Receive Date: 20131101
  Receipt Date: 20131101
  Transmission Date: 20140711
  Serious: Yes (Hospitalization)
  Sender: FDA-Public Use
  Company Number: GB-TEVA-439968ISR

PATIENT
  Age: 87 Year
  Sex: Female
  Weight: 53 kg

DRUGS (17)
  1. PREDNISOLONE [Suspect]
     Indication: POLYMYALGIA RHEUMATICA
     Dosage: 3 MILLIGRAM DAILY; STARTED ABOUT 10 YEARS AGO. ONGOING.
     Route: 048
  2. PREDNISOLONE [Suspect]
     Dosage: REPEAT MEDICATION.
  3. XARELTO [Suspect]
     Indication: CEREBROVASCULAR ACCIDENT PROPHYLAXIS
     Dosage: 15 MILLIGRAM DAILY;
     Route: 048
     Dates: start: 201306, end: 20130925
  4. PROCHLORPERAZINE [Concomitant]
     Indication: DIZZINESS
     Dosage: 10 MILLIGRAM DAILY; ONE TO BE TAKEN TWICE DAILY IF REQUIRED.
  5. BISOPROLOL [Concomitant]
     Dosage: 2.5 MILLIGRAM DAILY; REPEAT MEDICATION.
  6. CLOPIDOGREL [Concomitant]
     Dosage: 75 MILLIGRAM DAILY; REPEAT MEDICATION.
  7. CHOLECALCIFEROL [Concomitant]
     Dosage: 4 DOSAGE FORMS DAILY; REPEAT MEDICATION.
  8. CALCIUM CARBONATE [Concomitant]
     Dosage: 4 DOSAGE FORMS DAILY; REPEAT MEDICATION.
  9. DIGOXIN [Concomitant]
     Dosage: 125 MICROGRAM DAILY; REPEAT MEDICATION.
  10. FUROSEMIDE [Concomitant]
     Dosage: 20 MILLIGRAM DAILY; REPEAT MEDICATION. ONE IN THE MORNING.
  11. LEVOTHYROXINE SODIUM [Concomitant]
     Dosage: 100 MICROGRAM DAILY; REPEAT MEDICATION.
  12. LEVOTHYROXINE SODIUM [Concomitant]
     Dosage: TAKE ONE EACH MORNING. REPEAT MEDICATION.
  13. LOPERAMIDE [Concomitant]
     Dosage: 4 MILLIGRAM DAILY; REPEAT MEDICATION.
  14. PARACETAMOL [Concomitant]
     Dosage: 4000 MILLIGRAM DAILY; REPEAT MEDICATION.
  15. SIMVASTATIN [Concomitant]
     Dosage: 20 MILLIGRAM DAILY; ONE AT TEATIME. REPEAT MEDICATION.
  16. TRAMADOL [Concomitant]
     Dosage: 150 MILLIGRAM DAILY; REPEAT MEDICATION.
  17. ALENDRONIC ACID [Concomitant]
     Dosage: REPEAT MEDICATION.

REACTIONS (2)
  - Lower gastrointestinal haemorrhage [Recovering/Resolving]
  - Melaena [Recovering/Resolving]
